FAERS Safety Report 16133473 (Version 1)
Quarter: 2019Q1

REPORT INFORMATION
  Report Type: Other
  Country: ES (occurrence: ES)
  Receive Date: 20190329
  Receipt Date: 20190329
  Transmission Date: 20190418
  Serious: Yes (Other)
  Sender: FDA-Public Use
  Company Number: ES-APOTEX-2019AP010221

PATIENT
  Age: 76 Year
  Sex: Female

DRUGS (4)
  1. SIMVASTATIN. [Suspect]
     Active Substance: SIMVASTATIN
     Indication: HYPERLIPIDAEMIA
     Dosage: 20 MG, QD
     Route: 048
     Dates: start: 20180520
  2. TORASEMIDA [Suspect]
     Active Substance: TORSEMIDE
     Indication: HYPERTENSION
     Dosage: 5 MG, QD
     Route: 048
     Dates: start: 20180520
  3. CANDESARTAN. [Suspect]
     Active Substance: CANDESARTAN
     Indication: HYPERTENSION
     Dosage: 32 MG, QD
     Route: 048
     Dates: start: 20180520
  4. NITROFURANTOINA LIADE COMPRIMIDOS, 20 [Suspect]
     Active Substance: NITROFURANTOIN
     Indication: CYSTITIS
     Dosage: 50 MG, QD
     Route: 048
     Dates: start: 20180516, end: 20181010

REACTIONS (2)
  - Pyrexia [Recovered/Resolved]
  - Oral discomfort [Unknown]

NARRATIVE: CASE EVENT DATE: 20180610
